FAERS Safety Report 8072097-1 (Version None)
Quarter: 2012Q1

REPORT INFORMATION
  Report Type: 
  Country: None (occurrence: None)
  Receive Date: 20120126
  Receipt Date: 20120123
  Transmission Date: 20120608
  Serious: Yes (Death, Life-Threatening, Hospitalization)
  Sender: FDA-Public Use
  Company Number: BE-GENZYME-CLOF-1001988

PATIENT
  Sex: Female
  Weight: 74 kg

DRUGS (3)
  1. EVOLTRA [Suspect]
     Indication: ACUTE LEUKAEMIA
     Dosage: 16.9 MG, QD
     Route: 042
     Dates: start: 20111214, end: 20111218
  2. CYTARABINE [Concomitant]
     Indication: ACUTE LEUKAEMIA
     Dosage: 3380 MG, QD
     Route: 042
     Dates: start: 20111214, end: 20111219
  3. AMSACRINE [Concomitant]
     Indication: ACUTE LEUKAEMIA
     Dosage: 203 MG, QD
     Route: 042
     Dates: start: 20111217, end: 20111219

REACTIONS (3)
  - RESPIRATORY FAILURE [None]
  - ENCEPHALITIS [None]
  - ILEUS PARALYTIC [None]
